FAERS Safety Report 9671255 (Version 2)
Quarter: 2013Q4

REPORT INFORMATION
  Report Type: Spontaneous
  Country: DE (occurrence: DE)
  Receive Date: 20131106
  Receipt Date: 20131118
  Transmission Date: 20140711
  Serious: Yes (Death, Hospitalization)
  Sender: FDA-Public Use
  Company Number: DE-CELGENEUS-062-21660-13105195

PATIENT
  Sex: Male

DRUGS (3)
  1. ABRAXANE [Suspect]
     Indication: PANCREATIC CARCINOMA
     Route: 041
  2. ABRAXANE [Suspect]
     Indication: OFF LABEL USE
  3. DECITABINE [Concomitant]
     Indication: PANCREATIC CARCINOMA
     Route: 065

REACTIONS (5)
  - Generalised oedema [Unknown]
  - Hypoalbuminaemia [Unknown]
  - Respiratory failure [Fatal]
  - Pneumonitis [Unknown]
  - Pneumonia [Unknown]
